FAERS Safety Report 19583901 (Version 3)
Quarter: 2021Q3

REPORT INFORMATION
  Report Type: Spontaneous
  Country: US (occurrence: US)
  Receive Date: 20210720
  Receipt Date: 20210929
  Transmission Date: 20211014
  Serious: No
  Sender: FDA-Public Use
  Company Number: US-GLAXOSMITHKLINE-US2021151983

PATIENT
  Age: 53 Year
  Sex: Female

DRUGS (2)
  1. ZEJULA [Suspect]
     Active Substance: NIRAPARIB
     Indication: OVARIAN CANCER
     Dosage: 200 MG, QD QPM(4PM)
     Route: 048
     Dates: start: 20210701
  2. ZEJULA [Suspect]
     Active Substance: NIRAPARIB
     Dosage: 200 MG, QD
     Route: 048

REACTIONS (8)
  - Constipation [Unknown]
  - Insomnia [Unknown]
  - Nausea [Recovering/Resolving]
  - Decreased appetite [Unknown]
  - Anxiety [Unknown]
  - Fatigue [Recovering/Resolving]
  - Heart rate increased [Not Recovered/Not Resolved]
  - Vomiting [Unknown]

NARRATIVE: CASE EVENT DATE: 202107
